FAERS Safety Report 9948676 (Version 2)
Quarter: 2014Q2

REPORT INFORMATION
  Report Type: Spontaneous
  Country: CA (occurrence: CA)
  Receive Date: 20140304
  Receipt Date: 20140410
  Transmission Date: 20141212
  Serious: Yes (Other)
  Sender: FDA-Public Use
  Company Number: CA-ROCHE-1357531

PATIENT
  Sex: Female

DRUGS (4)
  1. RITUXAN [Suspect]
     Indication: IMMUNE THROMBOCYTOPENIC PURPURA
     Route: 042
     Dates: start: 201208
  2. RITUXAN [Suspect]
     Route: 065
     Dates: start: 201209
  3. RITUXAN [Suspect]
     Route: 065
     Dates: start: 201210
  4. DEXAMETHASONE [Concomitant]

REACTIONS (4)
  - Platelet count decreased [Unknown]
  - Infusion related reaction [Unknown]
  - Off label use [Unknown]
  - Viral infection [Unknown]
